FAERS Safety Report 7400483-9 (Version None)
Quarter: 2011Q2

REPORT INFORMATION
  Report Type: 
  Country: None (occurrence: None)
  Receive Date: 20110407
  Receipt Date: 20110331
  Transmission Date: 20111010
  Serious: Yes (Death, Hospitalization)
  Sender: FDA-Public Use
  Company Number: US-PURDUE-USA-2011-0066321

PATIENT
  Age: 55 Year
  Sex: Male

DRUGS (1)
  1. OXYCONTIN [Suspect]
     Indication: PRODUCT USED FOR UNKNOWN INDICATION
     Dosage: 120 MG, UNK
     Dates: start: 20060101, end: 20100425

REACTIONS (4)
  - CARDIAC DISORDER [None]
  - OPIATES POSITIVE [None]
  - CORONARY ARTERY OCCLUSION [None]
  - RESPIRATORY DEPRESSION [None]
